FAERS Safety Report 7112767-2 (Version None)
Quarter: 2010Q4

REPORT INFORMATION
  Report Type: 
  Country: None (occurrence: None)
  Receive Date: 20101119
  Receipt Date: 20101112
  Transmission Date: 20110411
  Serious: Yes (Other)
  Sender: FDA-Public Use
  Company Number: US-PFIZER INC-2010147564

PATIENT
  Sex: Female

DRUGS (1)
  1. GABAPENTIN [Suspect]
     Dosage: UNK
     Dates: start: 20100901

REACTIONS (5)
  - BALANCE DISORDER [None]
  - BRAIN NEOPLASM [None]
  - DIZZINESS [None]
  - FALL [None]
  - WRIST FRACTURE [None]
